FAERS Safety Report 4433746-X (Version None)
Quarter: 2004Q3

REPORT INFORMATION
  Report Type: 
  Country: None (occurrence: None)
  Receive Date: 20040825
  Receipt Date: 20040825
  Transmission Date: 20050211
  Serious: Yes (Hospitalization)
  Sender: FDA-Public Use
  Company Number: None

PATIENT
  Sex: Male
  Weight: 113.8529 kg

DRUGS (9)
  1. TETRATHIOMOLYBDATE [Suspect]
     Dosage: 100 MG PO QD
     Route: 048
     Dates: start: 20041110, end: 20040727
  2. IMURAN [Concomitant]
  3. ZOCOR [Concomitant]
  4. PREDNISONE [Concomitant]
  5. COZOR [Concomitant]
  6. GLUCOPHAGE [Concomitant]
  7. GLIPIZIDE [Concomitant]
  8. COMBIVIENT [Concomitant]
  9. ACTOS [Concomitant]

REACTIONS (2)
  - DYSPNOEA [None]
  - PULMONARY EMBOLISM [None]
